FAERS Safety Report 4845883-6 (Version None)
Quarter: 2005Q4

REPORT INFORMATION
  Report Type: 
  Country: None (occurrence: None)
  Receive Date: 20051129
  Receipt Date: 20050531
  Transmission Date: 20060501
  Serious: Yes (Other)
  Sender: FDA-Public Use
  Company Number: 2005BH000069

PATIENT
  Age: 67 Year
  Sex: Male

DRUGS (1)
  1. OMR-IGG-AM (OMRIX) [Suspect]
     Indication: CASTLEMAN'S DISEASE
     Dosage: 400 MG/KG;EVERY DAY; IV
     Route: 042

REACTIONS (4)
  - CEREBROVASCULAR ACCIDENT [None]
  - DYSARTHRIA [None]
  - HEMIPARESIS [None]
  - MYOCARDIAL INFARCTION [None]
